FAERS Safety Report 11665568 (Version 17)
Quarter: 2018Q1

REPORT INFORMATION
  Report Type: Report from Study
  Country: CO (occurrence: CO)
  Receive Date: 20151027
  Receipt Date: 20180101
  Transmission Date: 20180508
  Serious: Yes (Life-Threatening, Hospitalization, Other)
  Sender: FDA-Public Use
  Company Number: PHHY2015CO137477

PATIENT
  Age: 64 Year
  Sex: Female
  Weight: 73 kg

DRUGS (7)
  1. SANDOSTATIN LAR DEPOT [Suspect]
     Active Substance: OCTREOTIDE ACETATE
     Dosage: 2 DF, QMO (2 AMPOULES OF 20 MG MONTHLY)
     Route: 030
     Dates: start: 20170701
  2. ASPIRIN. [Concomitant]
     Active Substance: ASPIRIN
     Indication: PRODUCT USED FOR UNKNOWN INDICATION
     Dosage: 100 MG, QD
     Route: 048
  3. ATORVASTATIN [Suspect]
     Active Substance: ATORVASTATIN
     Indication: BLOOD PRESSURE INCREASED
     Dosage: 25 MG, QD
     Route: 048
  4. CAPTOPRIL. [Concomitant]
     Active Substance: CAPTOPRIL
     Indication: BLOOD PRESSURE INCREASED
     Dosage: 25 MG, QD
     Route: 048
  5. METOPROLOL. [Concomitant]
     Active Substance: METOPROLOL
     Indication: BLOOD PRESSURE INCREASED
     Dosage: 50 MG, QD
     Route: 048
  6. SANDOSTATIN LAR DEPOT [Suspect]
     Active Substance: OCTREOTIDE ACETATE
     Indication: ACROMEGALY
     Dosage: 20 MG, (2 MONTHLY)
     Route: 030
     Dates: start: 20040915
  7. SANDOSTATIN LAR DEPOT [Suspect]
     Active Substance: OCTREOTIDE ACETATE
     Dosage: 40 MG QMO
     Route: 030
     Dates: start: 20160907

REACTIONS (27)
  - Tachycardia [Unknown]
  - Optic nerve disorder [Unknown]
  - Blood pressure decreased [Unknown]
  - Urinary tract infection [Unknown]
  - Chills [Unknown]
  - Weight decreased [Unknown]
  - Pain [Unknown]
  - Vomiting [Recovering/Resolving]
  - Immunodeficiency [Unknown]
  - Weight increased [Unknown]
  - Dysuria [Unknown]
  - Infarction [Unknown]
  - Glaucoma [Unknown]
  - Ageusia [Unknown]
  - Chest pain [Unknown]
  - Nephrolithiasis [Unknown]
  - Osteoporosis [Unknown]
  - Renal cyst [Unknown]
  - Bone erosion [Unknown]
  - Insulin-like growth factor increased [Unknown]
  - Inappropriate schedule of drug administration [Unknown]
  - Pain in extremity [Unknown]
  - Visual impairment [Unknown]
  - Pyrexia [Unknown]
  - Dehydration [Unknown]
  - Decreased appetite [Unknown]
  - Blood glucose increased [Unknown]

NARRATIVE: CASE EVENT DATE: 20130801
